FAERS Safety Report 8059583-5 (Version None)
Quarter: 2012Q1

REPORT INFORMATION
  Report Type: 
  Country: None (occurrence: None)
  Receive Date: 20120119
  Receipt Date: 20120119
  Transmission Date: 20120608
  Serious: Yes (Hospitalization)
  Sender: FDA-Public Use
  Company Number: None

PATIENT
  Sex: Female
  Weight: 30.4 kg

DRUGS (4)
  1. DILAUDID [Concomitant]
  2. FENTANYL [Concomitant]
  3. TAXOL [Suspect]
     Dosage: 60 MG
     Dates: end: 20120110
  4. CISPLATIN [Suspect]
     Dosage: 30 MG
     Dates: end: 20120110

REACTIONS (5)
  - FEBRILE NEUTROPENIA [None]
  - HAEMATEMESIS [None]
  - ABDOMINAL PAIN [None]
  - NAUSEA [None]
  - DIARRHOEA [None]
